FAERS Safety Report 24806111 (Version 1)
Quarter: 2025Q1

REPORT INFORMATION
  Report Type: Spontaneous
  Country: US (occurrence: US)
  Receive Date: 20250103
  Receipt Date: 20250103
  Transmission Date: 20250409
  Serious: Yes (Disabling, Other)
  Sender: LUNDBECK
  Company Number: US-LUNDBECK-DKLU4008573

PATIENT

DRUGS (4)
  1. ONFI [Suspect]
     Active Substance: CLOBAZAM
     Indication: Seizure
     Dosage: 15 MILLIGRAM
     Route: 048
     Dates: start: 2015
  2. ONFI [Suspect]
     Active Substance: CLOBAZAM
     Indication: Epilepsy
     Dosage: 15 MILLIGRAM
     Route: 048
     Dates: start: 2024
  3. CLOBAZAM [Suspect]
     Active Substance: CLOBAZAM
     Indication: Seizure
     Dosage: 15 MILLIGRAM
     Route: 048
     Dates: end: 2024
  4. CLOBAZAM [Suspect]
     Active Substance: CLOBAZAM
     Indication: Epilepsy

REACTIONS (11)
  - Sedation [Recovered/Resolved]
  - Seizure [Not Recovered/Not Resolved]
  - Drooling [Recovered/Resolved]
  - Therapeutic product effect decreased [Unknown]
  - Aggression [Recovered/Resolved]
  - Nasal congestion [Recovered/Resolved]
  - Hyperhidrosis [Recovered/Resolved]
  - Dry mouth [Not Recovered/Not Resolved]
  - Anticonvulsant drug level increased [Unknown]
  - Anticonvulsant drug level decreased [Unknown]
  - Product storage error [Unknown]

NARRATIVE: CASE EVENT DATE: 20240101
